FAERS Safety Report 6177508-4 (Version None)
Quarter: 2009Q2

REPORT INFORMATION
  Report Type: 
  Country: None (occurrence: None)
  Receive Date: 20090504
  Receipt Date: 20090427
  Transmission Date: 20091009
  Serious: Yes (Other)
  Sender: FDA-Public Use
  Company Number: DE-B.I. PHARMACEUTICALS,INC./RIDGEFIELD-2009-DE-03406DE

PATIENT
  Sex: Female
  Weight: 110 kg

DRUGS (4)
  1. MICARDIS [Suspect]
     Route: 048
  2. ISOPTIN [Suspect]
  3. LEVOTHYROXINE SODIUM [Suspect]
  4. ZENTROPIL TABLETTEN 100 [Suspect]
     Dosage: 20- 30 TABLETS

REACTIONS (3)
  - FATIGUE [None]
  - SUICIDE ATTEMPT [None]
  - SWOLLEN TONGUE [None]
